FAERS Safety Report 17456511 (Version 2)
Quarter: 2020Q1

REPORT INFORMATION
  Report Type: Spontaneous
  Country: US (occurrence: US)
  Receive Date: 20200225
  Receipt Date: 20200228
  Transmission Date: 20200409
  Serious: Yes (Hospitalization, Other)
  Sender: FDA-Public Use
  Company Number: US-PFIZER INC-2020080755

PATIENT
  Age: 27 Year
  Sex: Female
  Weight: 65.77 kg

DRUGS (4)
  1. GABAPENTIN. [Suspect]
     Active Substance: GABAPENTIN
     Indication: ARTHRALGIA
     Dosage: 300 MG, 3X/DAY
     Route: 048
     Dates: start: 2017, end: 2018
  2. GABAPENTIN. [Suspect]
     Active Substance: GABAPENTIN
     Indication: ARTHRITIS
  3. ABILIFY [Suspect]
     Active Substance: ARIPIPRAZOLE
     Indication: BIPOLAR DISORDER
     Dosage: UNK
     Dates: start: 201712
  4. ABILIFY [Suspect]
     Active Substance: ARIPIPRAZOLE
     Dosage: 30 MG, 1X/DAY [30MG A DAY]
     Dates: end: 2018

REACTIONS (6)
  - Agitation [Unknown]
  - Dyspnoea [Unknown]
  - Product use in unapproved indication [Unknown]
  - Clostridium difficile colitis [Unknown]
  - Abortion spontaneous [Unknown]
  - Off label use [Unknown]

NARRATIVE: CASE EVENT DATE: 2017
